FAERS Safety Report 6212749-9 (Version None)
Quarter: 2009Q2

REPORT INFORMATION
  Report Type: 
  Country: None (occurrence: None)
  Receive Date: 20090603
  Receipt Date: 20090529
  Transmission Date: 20091009
  Serious: Yes (Disabling)
  Sender: FDA-Public Use
  Company Number: CH-BRISTOL-MYERS SQUIBB COMPANY-14642961

PATIENT
  Age: 47 Year
  Sex: Male

DRUGS (3)
  1. CISPLATIN [Suspect]
     Indication: TESTIS CANCER
     Dosage: FROM 20JAN09-24JAN09; AND 10FEB09-14FEB09;
     Route: 042
     Dates: start: 20090214, end: 20090214
  2. ETOPOPHOS PRESERVATIVE FREE [Suspect]
     Indication: TESTIS CANCER
     Dosage: FROM 20JAN09-24JAN09; AND 10FEB09-14FEB09;
     Route: 042
     Dates: start: 20090214, end: 20090214
  3. BLEOMYCIN SULFATE [Suspect]
     Indication: TESTIS CANCER
     Dosage: FROM 20JAN09-24JAN09; AND 10FEB09-14FEB09;RECEIVED 6 DOSES
     Route: 042
     Dates: start: 20090214, end: 20090214

REACTIONS (2)
  - INTERSTITIAL LUNG DISEASE [None]
  - PNEUMOMEDIASTINUM [None]
